FAERS Safety Report 20016742 (Version 1)
Quarter: 2021Q4

REPORT INFORMATION
  Report Type: Spontaneous
  Country: US (occurrence: None)
  Receive Date: 20211104
  Receipt Date: 20211104
  Transmission Date: 20220303
  Serious: Yes (Hospitalization)
  Sender: FDA-Public Use
  Company Number: None

PATIENT
  Age: 39 Year
  Sex: Female

DRUGS (6)
  1. IMATINIB MESYLATE [Suspect]
     Active Substance: IMATINIB MESYLATE
     Indication: Chronic myeloid leukaemia
     Dosage: FREQUENCY : DAILY;?
     Route: 048
     Dates: start: 20201007
  2. FAMOTIDINE [Suspect]
     Active Substance: FAMOTIDINE
  3. LORAZEPAM [Suspect]
     Active Substance: LORAZEPAM
  4. HYDROCODONE BITARTRATE [Suspect]
     Active Substance: HYDROCODONE BITARTRATE
  5. XARELTO [Suspect]
     Active Substance: RIVAROXABAN
  6. VITAMIN D [Suspect]
     Active Substance: VITAMIN D NOS

REACTIONS (3)
  - Pulmonary thrombosis [None]
  - Diarrhoea [None]
  - Postoperative thrombosis [None]

NARRATIVE: CASE EVENT DATE: 20210901
